FAERS Safety Report 5759613-7 (Version None)
Quarter: 2008Q2

REPORT INFORMATION
  Report Type: 
  Country: None (occurrence: None)
  Receive Date: 20080605
  Receipt Date: 20080527
  Transmission Date: 20081010
  Serious: Yes (Life-Threatening, Hospitalization)
  Sender: FDA-Public Use
  Company Number: DE-ELI_LILLY_AND_COMPANY-DE200805005481

PATIENT
  Sex: Male

DRUGS (2)
  1. FORTEO [Suspect]
     Indication: OSTEOPOROSIS
     Dosage: 20 MG, DAILY (1/D)
     Route: 058
     Dates: start: 20070717, end: 20080503
  2. CALCIUM WITH VITAMIN D [Concomitant]
     Dosage: 600 MG, DAILY (1/D)
     Route: 048

REACTIONS (3)
  - DIARRHOEA [None]
  - IMMUNE SYSTEM DISORDER [None]
  - MENINGITIS [None]
